FAERS Safety Report 23079841 (Version 2)
Quarter: 2023Q4

REPORT INFORMATION
  Report Type: Spontaneous
  Country: US (occurrence: US)
  Receive Date: 20231018
  Receipt Date: 20231110
  Transmission Date: 20240110
  Serious: Yes (Other)
  Sender: FDA-Public Use
  Company Number: US-Stemline Therapeutics, Inc.-2023ST003082

PATIENT
  Age: 65 Year
  Sex: Female

DRUGS (1)
  1. ORSERDU [Suspect]
     Active Substance: ELACESTRANT
     Indication: Product used for unknown indication
     Route: 048
     Dates: start: 20230816

REACTIONS (4)
  - Drug ineffective [Unknown]
  - Tumour marker increased [Unknown]
  - Central venous catheterisation [Unknown]
  - Disease progression [Unknown]
